FAERS Safety Report 8163970 (Version 4)
Quarter: 2014Q4

REPORT INFORMATION
  Report Type: Spontaneous
  Country: US (occurrence: US)
  Receive Date: 20110930
  Receipt Date: 20141024
  Transmission Date: 20150529
  Serious: Yes (Other)
  Sender: FDA-Public Use
  Company Number: US-ASTRAZENECA-2011SE11587

PATIENT
  Age: 770 Month
  Sex: Female
  Weight: 67.6 kg

DRUGS (15)
  1. SYMBICORT [Suspect]
     Active Substance: BUDESONIDE\FORMOTEROL FUMARATE DIHYDRATE
     Indication: SARCOIDOSIS
     Dosage: 160 UG, DAILY
     Route: 055
     Dates: start: 201312, end: 201408
  2. HYDROMET [Concomitant]
     Active Substance: HOMATROPINE METHYLBROMIDE\HYDROCODONE BITARTRATE
     Indication: COUGH
     Dosage: 1 TEASPOON EVERY 4 HOURS AS NEEDED
     Route: 048
     Dates: start: 2009
  3. PROAIR HFA [Concomitant]
     Active Substance: ALBUTEROL SULFATE
     Indication: INHALATION THERAPY
     Dosage: 2 PUFFS TWICE DAILY
     Route: 055
     Dates: start: 2009
  4. PULMICORT FLEXHALER [Suspect]
     Active Substance: BUDESONIDE
     Indication: SARCOIDOSIS
     Dosage: 180 UG, UNKNOWN
     Route: 055
     Dates: start: 2009, end: 2010
  5. PULMICORT FLEXHALER [Suspect]
     Active Substance: BUDESONIDE
     Indication: ASTHMA
     Dosage: 180 UG, UNKNOWN
     Route: 055
     Dates: start: 201410, end: 201410
  6. CRESTOR [Suspect]
     Active Substance: ROSUVASTATIN CALCIUM
     Indication: BLOOD CHOLESTEROL INCREASED
     Route: 048
  7. BENZONATATE FOR TESSALON PERLES [Concomitant]
     Indication: COUGH
     Dosage: 1 TO 2 CAPSULES EVERY 8 HOURS AS NEEDED
     Route: 048
     Dates: start: 20141009
  8. ROPINIROLE. [Concomitant]
     Active Substance: ROPINIROLE
     Indication: RESTLESS LEGS SYNDROME
     Route: 048
     Dates: start: 2011
  9. ARIMIDEX [Suspect]
     Active Substance: ANASTROZOLE
     Indication: BREAST CANCER FEMALE
     Route: 048
  10. SYMBICORT [Suspect]
     Active Substance: BUDESONIDE\FORMOTEROL FUMARATE DIHYDRATE
     Indication: SARCOIDOSIS
     Dosage: 320.9 UG, 2 PUFFS, TWO TIMES A DAY
     Route: 055
     Dates: start: 2010, end: 201312
  11. PULMICORT FLEXHALER [Suspect]
     Active Substance: BUDESONIDE
     Indication: ASTHMA
     Dosage: 180 UG, UNKNOWN
     Route: 055
     Dates: start: 2009, end: 2010
  12. NEXIUM [Suspect]
     Active Substance: ESOMEPRAZOLE MAGNESIUM
     Indication: GASTROOESOPHAGEAL REFLUX DISEASE
     Route: 048
  13. SYMBICORT [Suspect]
     Active Substance: BUDESONIDE\FORMOTEROL FUMARATE DIHYDRATE
     Indication: SARCOIDOSIS
     Dosage: 320.9 UG, DAILY
     Route: 055
     Dates: start: 201312, end: 201408
  14. PULMICORT FLEXHALER [Suspect]
     Active Substance: BUDESONIDE
     Indication: SARCOIDOSIS
     Dosage: 180 UG, UNKNOWN
     Route: 055
     Dates: start: 201410, end: 201410
  15. BYSTOLIC [Concomitant]
     Active Substance: NEBIVOLOL HYDROCHLORIDE
     Indication: HYPERTENSION
     Dates: start: 2012

REACTIONS (14)
  - Breast cancer female [Unknown]
  - Sarcoidosis [Unknown]
  - Epigastric discomfort [Unknown]
  - Tongue disorder [Recovered/Resolved]
  - Vomiting [Recovered/Resolved]
  - Laryngitis [Unknown]
  - Oral pain [Recovered/Resolved]
  - Catheterisation cardiac abnormal [Unknown]
  - Nausea [Recovered/Resolved]
  - Intentional product misuse [Unknown]
  - Adverse event [Unknown]
  - Cough [Not Recovered/Not Resolved]
  - Product use issue [Unknown]
  - Off label use [Unknown]

NARRATIVE: CASE EVENT DATE: 200905
